FAERS Safety Report 14346482 (Version 1)
Quarter: 2018Q1

REPORT INFORMATION
  Report Type: Spontaneous
  Country: FR (occurrence: FR)
  Receive Date: 20180103
  Receipt Date: 20180103
  Transmission Date: 20180509
  Serious: Yes (Death, Life-Threatening)
  Sender: FDA-Public Use
  Company Number: FR-PFIZER INC-2017555526

PATIENT
  Sex: Female
  Weight: 3.8 kg

DRUGS (1)
  1. ZOLOFT [Suspect]
     Active Substance: SERTRALINE HYDROCHLORIDE
     Dosage: 1 DF, 1X/DAY
     Route: 064
     Dates: start: 201703, end: 20170609

REACTIONS (3)
  - Hypoxic-ischaemic encephalopathy [Fatal]
  - Foetal death [Fatal]
  - Maternal exposure during pregnancy [Fatal]

NARRATIVE: CASE EVENT DATE: 201703
